FAERS Safety Report 20501702 (Version 2)
Quarter: 2022Q1

REPORT INFORMATION
  Report Type: Report from Study
  Country: TN (occurrence: TN)
  Receive Date: 20220222
  Receipt Date: 20220322
  Transmission Date: 20220423
  Serious: Yes (Hospitalization)
  Sender: FDA-Public Use
  Company Number: TN-ABBVIE-22K-160-4284889-00

PATIENT
  Age: 28 Year
  Sex: Female

DRUGS (5)
  1. HUMIRA [Suspect]
     Active Substance: ADALIMUMAB
     Indication: Crohn^s disease
     Route: 058
     Dates: start: 20191024, end: 20200819
  2. HUMIRA [Suspect]
     Active Substance: ADALIMUMAB
     Route: 058
     Dates: start: 20200912, end: 20201121
  3. HUMIRA [Suspect]
     Active Substance: ADALIMUMAB
     Route: 058
     Dates: start: 20201207, end: 20201222
  4. HUMIRA [Suspect]
     Active Substance: ADALIMUMAB
     Route: 058
     Dates: start: 20210108, end: 20210219
  5. HUMIRA [Suspect]
     Active Substance: ADALIMUMAB
     Route: 058
     Dates: start: 20210310, end: 20220128

REACTIONS (5)
  - Intestinal fistula [Recovered/Resolved]
  - Flatulence [Recovered/Resolved]
  - Abdominal abscess [Recovered/Resolved]
  - Abdominal pain [Recovered/Resolved]
  - Volvulus [Recovering/Resolving]

NARRATIVE: CASE EVENT DATE: 20211215
